FAERS Safety Report 14053782 (Version 1)
Quarter: 2017Q4

REPORT INFORMATION
  Report Type: Spontaneous
  Country: GB (occurrence: GB)
  Receive Date: 20171005
  Receipt Date: 20171005
  Transmission Date: 20180321
  Serious: Yes (Death, Congenital Anomaly)
  Sender: FDA-Public Use
  Company Number: GB-ABBVIE-17P-167-2122465-00

PATIENT
  Sex: Female

DRUGS (1)
  1. EPILIM [Suspect]
     Active Substance: VALPROATE SODIUM
     Indication: MATERNAL EXPOSURE TIMING UNSPECIFIED
     Route: 064

REACTIONS (7)
  - Anomaly of orbit, congenital [Unknown]
  - Low set ears [Unknown]
  - Cleft palate [Unknown]
  - Duodenal atresia [Unknown]
  - Congenital nose malformation [Unknown]
  - Death [Fatal]
  - Foetal exposure during pregnancy [Unknown]
